FAERS Safety Report 6196953-4 (Version None)
Quarter: 2009Q2

REPORT INFORMATION
  Report Type: 
  Country: None (occurrence: None)
  Receive Date: 20090520
  Receipt Date: 20090512
  Transmission Date: 20091009
  Serious: No
  Sender: FDA-Public Use
  Company Number: US-B.I. PHARMACEUTICALS,INC./RIDGEFIELD-2009-BP-05945BP

PATIENT
  Age: 26 Year
  Sex: Female

DRUGS (6)
  1. ZANTAC 150 [Suspect]
     Indication: DYSPEPSIA
     Dosage: 150MG
     Route: 048
     Dates: start: 20060101
  2. ZANTAC 150 [Suspect]
     Indication: GASTROOESOPHAGEAL REFLUX DISEASE
  3. TRUVADA [Concomitant]
     Indication: HIV INFECTION
  4. LEXIVA [Concomitant]
     Indication: HIV INFECTION
     Dosage: 1400MG
  5. NORVIR [Concomitant]
     Indication: HIV INFECTION
     Dosage: 100MG
  6. CITALOPRAM HYDROBROMIDE [Concomitant]
     Indication: DEPRESSION

REACTIONS (1)
  - SOMNOLENCE [None]
